FAERS Safety Report 7000782-9 (Version None)
Quarter: 2010Q3

REPORT INFORMATION
  Report Type: 
  Country: None (occurrence: None)
  Receive Date: 20100920
  Receipt Date: 20091223
  Transmission Date: 20110219
  Serious: Yes (Other)
  Sender: FDA-Public Use
  Company Number: US-ASTRAZENECA-2009UW13110

PATIENT
  Age: 45 Year
  Sex: Male
  Weight: 90.7 kg

DRUGS (7)
  1. SEROQUEL [Suspect]
     Indication: INSOMNIA
     Dosage: 50-200 MG
     Route: 048
     Dates: start: 20040101, end: 20071001
  2. RISPERDAL [Concomitant]
     Indication: INSOMNIA
  3. ZYPREXA [Concomitant]
     Indication: INSOMNIA
  4. ABILIFY [Concomitant]
     Dates: start: 20080101, end: 20090101
  5. GEODON [Concomitant]
     Dates: start: 20080101, end: 20090101
  6. HALDOL [Concomitant]
  7. THORAZINE [Concomitant]
     Dates: start: 20080101, end: 20090101

REACTIONS (8)
  - BIPOLAR DISORDER [None]
  - BLOOD CHOLESTEROL INCREASED [None]
  - BLOOD TRIGLYCERIDES INCREASED [None]
  - DEPRESSION [None]
  - DIABETIC COMA [None]
  - HYPERLIPIDAEMIA [None]
  - TYPE 1 DIABETES MELLITUS [None]
  - WEIGHT DECREASED [None]
